FAERS Safety Report 25142281 (Version 1)
Quarter: 2025Q1

REPORT INFORMATION
  Report Type: Other
  Country: XG (occurrence: XG)
  Receive Date: 20250331
  Receipt Date: 20250331
  Transmission Date: 20250409
  Serious: Yes (Congenital Anomaly, Other)
  Sender: B BRAUN
  Company Number: XG-B.Braun Medical Inc.-2173982

PATIENT
  Sex: Female

DRUGS (3)
  1. METRONIDAZOLE [Suspect]
     Active Substance: METRONIDAZOLE
  2. CEFTRIAXONE [Suspect]
     Active Substance: CEFTRIAXONE
  3. GLYCERIN [Suspect]
     Active Substance: GLYCERIN

REACTIONS (3)
  - Fibula agenesis [Unknown]
  - Maternal drugs affecting foetus [Unknown]
  - Spina bifida occulta [Unknown]
